FAERS Safety Report 9587253 (Version 1)
Quarter: 2013Q4

REPORT INFORMATION
  Report Type: Spontaneous
  Country: US (occurrence: US)
  Receive Date: 20131003
  Receipt Date: 20131003
  Transmission Date: 20140711
  Serious: No
  Sender: FDA-Public Use
  Company Number: US-TEVA-435956USA

PATIENT
  Age: 18 Year
  Sex: Female
  Weight: 74 kg

DRUGS (4)
  1. PARAGARD 380A [Suspect]
     Indication: CONTRACEPTION
     Route: 015
     Dates: start: 20130411, end: 20130916
  2. ANTIBIOTICS [Suspect]
  3. EFFEXOR [Concomitant]
     Indication: BIPOLAR DISORDER
     Dosage: 150 MILLIGRAM DAILY;
     Route: 048
  4. LAMYCTAL [Concomitant]
     Indication: BIPOLAR DISORDER
     Dosage: ONCE
     Route: 048
     Dates: start: 20130901

REACTIONS (6)
  - Fungal infection [Recovered/Resolved]
  - Device expulsion [Recovered/Resolved]
  - Bacterial infection [Recovered/Resolved]
  - Vaginal discharge [Not Recovered/Not Resolved]
  - Pruritus [Recovered/Resolved]
  - Fungal infection [Not Recovered/Not Resolved]
